FAERS Safety Report 23298482 (Version 1)
Quarter: 2023Q4

REPORT INFORMATION
  Report Type: Report from Study
  Country: US (occurrence: US)
  Receive Date: 20231214
  Receipt Date: 20231214
  Transmission Date: 20240109
  Serious: Yes (Other)
  Sender: FDA-Public Use
  Company Number: US-ABBVIE-5450194

PATIENT
  Age: 41 Year
  Sex: Female

DRUGS (1)
  1. RINVOQ [Suspect]
     Active Substance: UPADACITINIB
     Indication: Crohn^s disease
     Dosage: FORM STRENGTH: 45 MG
     Route: 048
     Dates: start: 20230831, end: 20231001

REACTIONS (6)
  - Sepsis [Unknown]
  - Pneumonia [Recovered/Resolved]
  - Fatigue [Unknown]
  - Pyrexia [Unknown]
  - Decreased appetite [Unknown]
  - Fistula [Unknown]

NARRATIVE: CASE EVENT DATE: 20231001
